FAERS Safety Report 26047027 (Version 1)
Quarter: 2025Q4

REPORT INFORMATION
  Report Type: Spontaneous
  Country: US (occurrence: US)
  Receive Date: 20251114
  Receipt Date: 20251114
  Transmission Date: 20260117
  Serious: Yes (Other)
  Sender: MERCK SHARP & DOHME LLC
  Company Number: US-009507513-2347255

PATIENT
  Sex: Male

DRUGS (3)
  1. KEYTRUDA [Suspect]
     Active Substance: PEMBROLIZUMAB
     Indication: Transitional cell carcinoma
     Route: 042
     Dates: start: 20240624, end: 20251007
  2. PADCEV [Suspect]
     Active Substance: ENFORTUMAB VEDOTIN-EJFV
     Indication: Transitional cell carcinoma
  3. DEXAMETHASONE [Concomitant]
     Active Substance: DEXAMETHASONE

REACTIONS (7)
  - Malignant neoplasm progression [Unknown]
  - Pruritus [Recovered/Resolved]
  - Fatigue [Recovered/Resolved]
  - Hypopnoea [Recovered/Resolved]
  - Dysphonia [Recovered/Resolved]
  - Neuralgia [Unknown]
  - Onychoclasis [Recovered/Resolved]

NARRATIVE: CASE EVENT DATE: 20250301
